FAERS Safety Report 6445945-6 (Version None)
Quarter: 2009Q4

REPORT INFORMATION
  Report Type: 
  Country: None (occurrence: None)
  Receive Date: 20091119
  Receipt Date: 20090213
  Transmission Date: 20100525
  Serious: No
  Sender: FDA-Public Use
  Company Number: A0768678A

PATIENT
  Age: 41 Year
  Sex: Female

DRUGS (9)
  1. BUPROPION HYDROCHLORIDE [Suspect]
     Dosage: 100MG PER DAY
     Route: 048
     Dates: start: 20080501
  2. LAMOTRIGINE [Suspect]
     Indication: BIPOLAR DISORDER
     Dosage: 200MG PER DAY
     Route: 048
     Dates: start: 20080501
  3. ADDERALL XR 10 [Suspect]
     Dosage: 25MG PER DAY
     Dates: start: 20080501
  4. ALPRAZOLAM [Suspect]
     Indication: ANXIETY
     Dosage: .5MG VARIABLE DOSE
     Dates: start: 20070101
  5. AMPHETAMINE SULFATE [Suspect]
     Dosage: 10MG VARIABLE DOSE
     Dates: start: 20080501
  6. HYDROCODONE BITARTRATE AND ACETAMINOPHEN [Concomitant]
  7. HYDROCHLOROTHIAZIDE [Concomitant]
  8. NEXIUM [Concomitant]
  9. EXCEDRIN (MIGRAINE) [Concomitant]

REACTIONS (5)
  - DRUG SCREEN FALSE POSITIVE [None]
  - DRUG SCREEN POSITIVE [None]
  - HEADACHE [None]
  - ROAD TRAFFIC ACCIDENT [None]
  - VIRAL TEST POSITIVE [None]
